FAERS Safety Report 5943778-8 (Version None)
Quarter: 2008Q4

REPORT INFORMATION
  Report Type: 
  Country: None (occurrence: None)
  Receive Date: 20081106
  Receipt Date: 20080929
  Transmission Date: 20090506
  Serious: No
  Sender: FDA-Public Use
  Company Number: US-BAYER-200834643NA

PATIENT
  Age: 32 Year
  Sex: Male
  Weight: 96 kg

DRUGS (1)
  1. ULTRAVIST 370 [Suspect]
     Indication: COMPUTERISED TOMOGRAM ABDOMEN
     Dosage: TOTAL DAILY DOSE: 100 ML  UNIT DOSE: 100 ML
     Route: 042
     Dates: start: 20080926, end: 20080926

REACTIONS (3)
  - OEDEMA MUCOSAL [None]
  - ORAL PRURITUS [None]
  - SNEEZING [None]
